FAERS Safety Report 8921477 (Version 2)
Quarter: 2012Q4

REPORT INFORMATION
  Report Type: 
  Country: US (occurrence: US)
  Receive Date: 20121122
  Receipt Date: 20121231
  Transmission Date: 20130627
  Serious: Yes (Hospitalization)
  Sender: FDA-Public Use
  Company Number: US-BIOGENIDEC-2012BI054571

PATIENT
  Age: 48 Year
  Sex: Female

DRUGS (3)
  1. TYSABRI [Suspect]
     Indication: MULTIPLE SCLEROSIS
     Route: 042
     Dates: start: 20120315, end: 20120928
  2. KEPPRA [Concomitant]
     Indication: CONVULSION
  3. ZYPREXA [Concomitant]
     Indication: ABNORMAL BEHAVIOUR

REACTIONS (2)
  - Sepsis [Unknown]
  - Drug specific antibody present [Unknown]
